FAERS Safety Report 20559994 (Version 1)
Quarter: 2022Q1

REPORT INFORMATION
  Report Type: Spontaneous
  Country: US (occurrence: None)
  Receive Date: 20220307
  Receipt Date: 20220307
  Transmission Date: 20220424
  Serious: No
  Sender: FDA-Public Use
  Company Number: None

PATIENT
  Age: 56 Year
  Sex: Female

DRUGS (1)
  1. FULVESTRANT [Suspect]
     Active Substance: FULVESTRANT
     Dosage: FREQUENCY : MONTHLY;?
     Route: 030

REACTIONS (3)
  - Burning sensation [None]
  - Cough [None]
  - Hypopnoea [None]

NARRATIVE: CASE EVENT DATE: 20220303
